FAERS Safety Report 17860172 (Version 2)
Quarter: 2020Q2

REPORT INFORMATION
  Report Type: Spontaneous
  Country: HU (occurrence: HU)
  Receive Date: 20200604
  Receipt Date: 20200619
  Transmission Date: 20200714
  Serious: Yes (Hospitalization, Other)
  Sender: FDA-Public Use
  Company Number: NVSC2020HU154933

PATIENT
  Age: 59 Year
  Sex: Female

DRUGS (4)
  1. TASIGNA [Suspect]
     Active Substance: NILOTINIB
     Indication: CHRONIC MYELOID LEUKAEMIA
     Dosage: 600 MG, QD
     Route: 065
     Dates: start: 201109
  2. TASIGNA [Suspect]
     Active Substance: NILOTINIB
     Dosage: 400 MG (2/1 TABLET)
     Route: 065
     Dates: end: 201804
  3. IMATINIB. [Suspect]
     Active Substance: IMATINIB MESYLATE
     Indication: CHRONIC MYELOID LEUKAEMIA
     Dosage: 400 MG, QD
     Route: 065
     Dates: end: 201109
  4. GLIVEC [Suspect]
     Active Substance: IMATINIB MESYLATE
     Indication: CHRONIC MYELOID LEUKAEMIA
     Dosage: 400 MG
     Route: 065

REACTIONS (26)
  - Ophthalmic artery thrombosis [Unknown]
  - Generalised oedema [Recovering/Resolving]
  - Liver function test increased [Unknown]
  - Vertebral artery stenosis [Unknown]
  - Intracranial aneurysm [Unknown]
  - Weight increased [Unknown]
  - Pain in extremity [Unknown]
  - Nausea [Unknown]
  - Oedema peripheral [Unknown]
  - Myalgia [Unknown]
  - Arthralgia [Unknown]
  - Hyperlipidaemia [Unknown]
  - Cytogenetic analysis abnormal [Recovered/Resolved]
  - Hypoaesthesia [Unknown]
  - Arterial occlusive disease [Unknown]
  - Vertebral artery occlusion [Unknown]
  - Peripheral swelling [Unknown]
  - Drug level increased [Unknown]
  - Arthropathy [Unknown]
  - Leukaemia recurrent [Unknown]
  - Carotid artery occlusion [Unknown]
  - Muscle rigidity [Unknown]
  - Metabolic disorder [Unknown]
  - Diarrhoea [Unknown]
  - Headache [Unknown]
  - Collateral circulation [Unknown]

NARRATIVE: CASE EVENT DATE: 201102
